FAERS Safety Report 6112882-6 (Version None)
Quarter: 2009Q1

REPORT INFORMATION
  Report Type: 
  Country: None (occurrence: None)
  Receive Date: 20090312
  Receipt Date: 20090302
  Transmission Date: 20090719
  Serious: Yes (Hospitalization)
  Sender: FDA-Public Use
  Company Number: PHHY2008DE29732

PATIENT
  Sex: Male

DRUGS (7)
  1. DIOVAN [Suspect]
     Dosage: 80 MG (0-0-1/D)
     Route: 048
     Dates: start: 20081101
  2. DIOVAN [Suspect]
     Dosage: 160 MG (0-0-1/D)
  3. DIOVAN HCT [Suspect]
     Dosage: 80/12.5 MG (1-0-0/D)
     Dates: start: 20081101
  4. DIOVAN HCT [Suspect]
     Dosage: 160/12.5 MG (1-0-0/D)
  5. RASILEZ [Suspect]
     Dosage: 0.5 DF, QD
  6. KEPPRA [Concomitant]
     Indication: CONVULSION
     Dosage: 1 DF, QD (1-0-0/D)
  7. AAS [Concomitant]
     Dosage: 1-0-0/D

REACTIONS (6)
  - BLOOD PRESSURE INADEQUATELY CONTROLLED [None]
  - BLOOD PRESSURE SYSTOLIC DECREASED [None]
  - CONDITION AGGRAVATED [None]
  - DRY MOUTH [None]
  - MALAISE [None]
  - UPPER LIMB FRACTURE [None]
